FAERS Safety Report 6160969-4 (Version None)
Quarter: 2009Q2

REPORT INFORMATION
  Report Type: 
  Country: None (occurrence: None)
  Receive Date: 20090420
  Receipt Date: 20090411
  Transmission Date: 20091009
  Serious: Yes (Other)
  Sender: FDA-Public Use
  Company Number: US-AMGEN-TCS342610

PATIENT
  Sex: Female

DRUGS (2)
  1. ENBREL [Suspect]
     Indication: RHEUMATOID ARTHRITIS
     Route: 058
     Dates: start: 20081127
  2. METHOTREXATE [Concomitant]
     Route: 058

REACTIONS (8)
  - ARTHRALGIA [None]
  - DYSPNOEA [None]
  - INJECTION SITE HAEMATOMA [None]
  - LATEX ALLERGY [None]
  - LOCAL SWELLING [None]
  - MALAISE [None]
  - THROAT TIGHTNESS [None]
  - UPPER RESPIRATORY TRACT INFECTION [None]
